FAERS Safety Report 4721944-7 (Version None)
Quarter: 2005Q3

REPORT INFORMATION
  Report Type: 
  Country: None (occurrence: None)
  Receive Date: 20050722
  Receipt Date: 20050711
  Transmission Date: 20060218
  Serious: Yes (Life-Threatening, Other)
  Sender: FDA-Public Use
  Company Number: FR-BRISTOL-MYERS SQUIBB COMPANY-13036942

PATIENT
  Age: 66 Year
  Sex: Female
  Weight: 85 kg

DRUGS (5)
  1. APROVEL TABS 150 MG [Suspect]
     Route: 048
     Dates: end: 20050515
  2. COAPROVEL TABS [Suspect]
     Route: 048
     Dates: start: 20050420, end: 20050515
  3. METFORMIN HCL [Suspect]
     Dates: end: 20050515
  4. LESCOL [Suspect]
     Dates: end: 20050515
  5. CO-TAREG [Concomitant]
     Dosage: STOPPED FIRST DAYS OF APR-2005
     Dates: start: 20040801, end: 20050401

REACTIONS (6)
  - AGITATION [None]
  - CONFUSIONAL STATE [None]
  - PANCREATITIS ACUTE [None]
  - PYREXIA [None]
  - RENAL FAILURE [None]
  - RESPIRATORY FAILURE [None]
